FAERS Safety Report 4875778-3 (Version None)
Quarter: 2006Q1

REPORT INFORMATION
  Report Type: 
  Country: None (occurrence: None)
  Receive Date: 20060104
  Receipt Date: 20051222
  Transmission Date: 20060701
  Serious: Yes (Hospitalization)
  Sender: FDA-Public Use
  Company Number: H-CH2005-09899

PATIENT
  Age: 74 Year
  Sex: Female

DRUGS (7)
  1. BOSENTAN (BOSENTAN I.PHS TABLET 125 MG) BOSENTAN (BOSENTAN) TABLET [Suspect]
     Indication: HYPERTENSION
     Dosage: 125 MG, BID, ORAL
     Route: 048
     Dates: start: 20050129
  2. DICLOFENAC (DICLOFENAC) [Suspect]
     Dosage: 50 MG, TID, ORAL
     Route: 048
  3. ACENOCOUMAROL (ACENOCOUMAROL) [Suspect]
     Indication: ATRIAL FIBRILLATION
     Dosage: 1 MG, PRN, ORAL
     Route: 048
  4. KETANSERIN (KETANSERIN) [Suspect]
     Dosage: 0, ORAL
     Route: 048
  5. MOVICOLON (SODIUM CHLORIDE, SODIUM BICARBONATE, POTASSIUM CHLORIDE, MA [Concomitant]
  6. PANTOPRAZOLE SODIUM [Concomitant]
  7. PREDNISONE [Concomitant]

REACTIONS (12)
  - ANAEMIA [None]
  - ARRHYTHMIA [None]
  - BLOOD CREATINE PHOSPHOKINASE INCREASED [None]
  - BLOOD LACTATE DEHYDROGENASE INCREASED [None]
  - DISEASE PROGRESSION [None]
  - DYSPNOEA EXERTIONAL [None]
  - FATIGUE [None]
  - HYPONATRAEMIA [None]
  - HYPOTHYROIDISM [None]
  - LOCALISED INFECTION [None]
  - MYALGIA [None]
  - SYSTEMIC SCLEROSIS [None]
